FAERS Safety Report 11429428 (Version 1)
Quarter: 2015Q3

REPORT INFORMATION
  Report Type: Spontaneous
  Country: US (occurrence: US)
  Receive Date: 20150828
  Receipt Date: 20150828
  Transmission Date: 20151125
  Serious: Yes (Life-Threatening, Other)
  Sender: FDA-Public Use
  Company Number: US-BRISTOL-MYERS SQUIBB COMPANY-BMS-2015-054845

PATIENT
  Age: 70 Year
  Sex: Male

DRUGS (2)
  1. IPILIMUMAB [Suspect]
     Active Substance: IPILIMUMAB
     Indication: SMALL CELL LUNG CANCER
     Route: 065
  2. NIVOLUMAB [Suspect]
     Active Substance: NIVOLUMAB
     Indication: SMALL CELL LUNG CANCER
     Route: 065

REACTIONS (2)
  - Myasthenia gravis [Not Recovered/Not Resolved]
  - Respiratory failure [Unknown]
